FAERS Safety Report 11878973 (Version 1)
Quarter: 2015Q4

REPORT INFORMATION
  Report Type: Spontaneous
  Country: JP (occurrence: JP)
  Receive Date: 20151230
  Receipt Date: 20151230
  Transmission Date: 20160305
  Serious: Yes (Hospitalization)
  Sender: FDA-Public Use
  Company Number: JP-MALLINCKRODT-T201506079

PATIENT
  Age: 41 Year
  Sex: Male

DRUGS (32)
  1. BEZATOL [Concomitant]
     Active Substance: BEZAFIBRATE
     Route: 048
  2. METHADONE [Suspect]
     Active Substance: METHADONE HYDROCHLORIDE
     Indication: CANCER PAIN
     Dosage: 50 MG DAILY DOSE
     Route: 048
     Dates: start: 20151117, end: 20151218
  3. ENDOXAN                            /00021101/ [Concomitant]
     Active Substance: CYCLOPHOSPHAMIDE
     Route: 051
  4. UBRETID [Concomitant]
     Active Substance: DISTIGMINE BROMIDE
     Route: 048
  5. HARNAL [Concomitant]
     Active Substance: TAMSULOSIN HYDROCHLORIDE
     Route: 048
  6. BESACOLIN [Concomitant]
     Active Substance: BETHANECHOL CHLORIDE
     Route: 048
  7. EURODIN [Concomitant]
     Active Substance: ESTAZOLAM
     Route: 048
  8. ACELIO [Concomitant]
     Active Substance: ACETAMINOPHEN
     Route: 051
  9. GRAN [Concomitant]
     Active Substance: FILGRASTIM
     Route: 051
  10. ROHYPNOL [Concomitant]
     Active Substance: FLUNITRAZEPAM
     Route: 051
  11. FOSCAVIR [Concomitant]
     Active Substance: FOSCARNET SODIUM
     Route: 051
  12. ALKERAN [Concomitant]
     Active Substance: MELPHALAN
     Dosage: UNK
     Route: 051
     Dates: start: 20151120, end: 20151121
  13. RISPERDAL [Concomitant]
     Active Substance: RISPERIDONE
     Route: 048
  14. FIRSTCIN [Concomitant]
     Active Substance: CEFOZOPRAN HYDROCHLORIDE
     Route: 051
  15. IFOMIDE [Concomitant]
     Active Substance: IFOSFAMIDE
     Dosage: UNK
  16. LYRICA [Concomitant]
     Active Substance: PREGABALIN
     Route: 048
  17. RIVOTRIL [Concomitant]
     Active Substance: CLONAZEPAM
     Route: 048
  18. OXIFAST [Concomitant]
     Active Substance: OXYCODONE
     Route: 051
  19. NEO MINOPHAGEN C [Concomitant]
     Route: 051
  20. SOLU-CORTEF [Concomitant]
     Active Substance: HYDROCORTISONE SODIUM SUCCINATE
     Route: 051
  21. METILON [Concomitant]
     Active Substance: METAMIZOLE SODIUM
     Route: 051
  22. ADRIACIN [Concomitant]
     Active Substance: DOXORUBICIN HYDROCHLORIDE
     Dosage: UNK
     Route: 065
  23. PROGRAF [Concomitant]
     Active Substance: TACROLIMUS\TACROLIMUS ANHYDROUS
     Dosage: UNK
     Route: 051
     Dates: start: 20151121
  24. URSODEOXYCHOLIC ACID [Concomitant]
     Active Substance: URSODIOL
     Route: 048
  25. CYMBALTA [Concomitant]
     Active Substance: DULOXETINE HYDROCHLORIDE
     Route: 048
  26. TRAZODONE [Concomitant]
     Active Substance: TRAZODONE HYDROCHLORIDE
     Route: 048
  27. XYLOCAINE [Concomitant]
     Active Substance: LIDOCAINE HYDROCHLORIDE
     Route: 051
  28. SERENACE [Concomitant]
     Active Substance: HALOPERIDOL
     Route: 051
  29. SOLU-MEDROL [Concomitant]
     Active Substance: METHYLPREDNISOLONE SODIUM SUCCINATE
     Route: 051
  30. IFOMIDE [Concomitant]
     Active Substance: IFOSFAMIDE
     Dosage: UNK
  31. LANSOPRAZOLE. [Concomitant]
     Active Substance: LANSOPRAZOLE
     Route: 048
  32. LIORESAL [Concomitant]
     Active Substance: BACLOFEN
     Route: 048

REACTIONS (1)
  - Septic shock [Not Recovered/Not Resolved]

NARRATIVE: CASE EVENT DATE: 20151218
